FAERS Safety Report 19321220 (Version 1)
Quarter: 2021Q2

REPORT INFORMATION
  Report Type: Spontaneous
  Country: US (occurrence: US)
  Receive Date: 20210528
  Receipt Date: 20210528
  Transmission Date: 20210717
  Serious: No
  Sender: FDA-Public Use
  Company Number: None

PATIENT
  Age: 74 Year
  Sex: Male

DRUGS (1)
  1. ZOLEDRONIC (ZOLEDRONIC ACID 4MG/VIL INJ) [Suspect]
     Active Substance: ZOLEDRONIC ACID
     Route: 042
     Dates: start: 20200911, end: 20200912

REACTIONS (1)
  - Influenza like illness [None]

NARRATIVE: CASE EVENT DATE: 20210315
